FAERS Safety Report 4696805-2 (Version None)
Quarter: 2005Q2

REPORT INFORMATION
  Report Type: 
  Country: None (occurrence: None)
  Receive Date: 20050622
  Receipt Date: 20050615
  Transmission Date: 20051028
  Serious: Yes (Hospitalization)
  Sender: FDA-Public Use
  Company Number: US-BRISTOL-MYERS SQUIBB COMPANY-13003603

PATIENT
  Age: 66 Year
  Sex: Female

DRUGS (5)
  1. CISPLATIN [Suspect]
     Indication: SQUAMOUS CELL CARCINOMA
     Route: 042
     Dates: start: 20010709, end: 20010820
  2. CETUXIMAB [Suspect]
     Indication: SQUAMOUS CELL CARCINOMA
     Route: 042
     Dates: start: 20010709, end: 20010709
  3. EPOGEN [Concomitant]
     Indication: ANAEMIA
     Dosage: DOSE = 30,000 UNITS
     Dates: start: 20010813, end: 20010813
  4. COMPAZINE [Concomitant]
     Indication: NAUSEA
     Dates: start: 20010709
  5. RED BLOOD CELLS [Concomitant]
     Indication: ANAEMIA
     Dosage: DOSE = 2 UNITS
     Dates: start: 20010815, end: 20010815

REACTIONS (1)
  - DEHYDRATION [None]
